FAERS Safety Report 8986522 (Version 1)
Quarter: 2012Q4

REPORT INFORMATION
  Report Type: 
  Country: FI (occurrence: SE)
  Receive Date: 20121226
  Receipt Date: 20121226
  Transmission Date: 20130627
  Serious: Yes (Hospitalization)
  Sender: FDA-Public Use
  Company Number: PHHY2012SE118220

PATIENT
  Sex: Female

DRUGS (5)
  1. COMTESS [Suspect]
     Indication: PARKINSON^S DISEASE
     Dates: start: 201206, end: 201207
  2. SEROQUEL [Concomitant]
  3. EXELON [Concomitant]
  4. MADOPARK QUICK [Concomitant]
  5. ORSTANORM [Concomitant]
     Dosage: 2.5 mg, UNK

REACTIONS (5)
  - Musculoskeletal stiffness [Recovered/Resolved]
  - Hypophagia [Recovered/Resolved]
  - Fluid intake reduced [Recovered/Resolved]
  - Hallucination [Recovered/Resolved]
  - Diarrhoea [Recovered/Resolved]
